FAERS Safety Report 9059353 (Version 1)
Quarter: 2013Q1

REPORT INFORMATION
  Report Type: Spontaneous
  Country: US (occurrence: US)
  Receive Date: 20130211
  Receipt Date: 20130211
  Transmission Date: 20140127
  Serious: No
  Sender: FDA-Public Use
  Company Number: US-ASTRAZENECA-2013SE06689

PATIENT
  Age: 63 Year
  Sex: Male
  Weight: 107.5 kg

DRUGS (4)
  1. LISINOPRIL [Suspect]
     Indication: HYPERTENSION
     Route: 048
  2. CRESTOR [Suspect]
     Indication: BLOOD CHOLESTEROL ABNORMAL
     Route: 048
     Dates: start: 20130122
  3. LOPRESSOR [Concomitant]
     Indication: HYPERTENSION
  4. NORVASC [Concomitant]
     Indication: HYPERTENSION

REACTIONS (7)
  - Pain [Not Recovered/Not Resolved]
  - Hot flush [Unknown]
  - Chills [Unknown]
  - Influenza like illness [Unknown]
  - Back pain [Unknown]
  - Hyperhidrosis [Unknown]
  - Myalgia [Unknown]
